FAERS Safety Report 24697285 (Version 1)
Quarter: 2024Q4

REPORT INFORMATION
  Report Type: Spontaneous
  Country: JP (occurrence: JP)
  Receive Date: 20241204
  Receipt Date: 20241204
  Transmission Date: 20250115
  Serious: Yes (Hospitalization, Other)
  Sender: MERCK
  Company Number: JP-MSD-2411JPN000788J

PATIENT
  Age: 9 Decade
  Sex: Male

DRUGS (2)
  1. STROMECTOL [Suspect]
     Active Substance: IVERMECTIN
     Indication: Acarodermatitis
     Dosage: 3 MILLIGRAM, 2-DAY SUPPLY
     Route: 048
     Dates: start: 2024, end: 2024
  2. STROMECTOL [Suspect]
     Active Substance: IVERMECTIN
     Dosage: 15 MILLIGRAM, QW
     Route: 048
     Dates: start: 20241105, end: 20241119

REACTIONS (4)
  - Cerebral infarction [Unknown]
  - Drug ineffective [Unknown]
  - Inappropriate schedule of product administration [Unknown]
  - Underdose [Unknown]

NARRATIVE: CASE EVENT DATE: 20240101
